FAERS Safety Report 17958535 (Version 1)
Quarter: 2020Q2

REPORT INFORMATION
  Report Type: Spontaneous
  Country: FR (occurrence: FR)
  Receive Date: 20200629
  Receipt Date: 20200629
  Transmission Date: 20200714
  Serious: Yes (Life-Threatening, Hospitalization)
  Sender: FDA-Public Use
  Company Number: FR-009507513-2006FRA009228

PATIENT
  Age: 57 Year
  Sex: Female
  Weight: 76 kg

DRUGS (7)
  1. METHYLPREDNISOLONE. [Suspect]
     Active Substance: METHYLPREDNISOLONE
     Indication: CHEMOTHERAPY SIDE EFFECT PROPHYLAXIS
     Dosage: 120 MILLIGRAM, ONCE (1 TOTAL)
     Route: 042
     Dates: start: 20200519
  2. CARBOPLATIN. [Suspect]
     Active Substance: CARBOPLATIN
     Indication: CERVIX CARCINOMA
     Dosage: 590 MILLIGRAM, ONCE (1 TOTAL), CONCENTRATION: 10MG/ML, CHEMOTHERAPY COURSE
     Route: 042
     Dates: start: 20200519
  3. CETIRIZINE HYDROCHLORIDE. [Suspect]
     Active Substance: CETIRIZINE HYDROCHLORIDE
     Indication: CHEMOTHERAPY SIDE EFFECT PROPHYLAXIS
     Dosage: 10 MILLIGRAM, ONCE (1 TOTAL),
     Route: 048
     Dates: start: 20200519
  4. ONDANSETRON [Suspect]
     Active Substance: ONDANSETRON
     Indication: CHEMOTHERAPY SIDE EFFECT PROPHYLAXIS
     Dosage: 8 MILLIGRAM, ONCE (1 TOTAL)
     Route: 042
     Dates: start: 20200519
  5. EMEND [Suspect]
     Active Substance: APREPITANT
     Indication: CHEMOTHERAPY SIDE EFFECT PROPHYLAXIS
     Dosage: 125 MILLIGRAM, ONCE (1 TOTAL)
     Route: 048
     Dates: start: 20200519
  6. PACLITAXEL. [Suspect]
     Active Substance: PACLITAXEL
     Indication: CERVIX CARCINOMA
     Dosage: 324 MILLIGRAM, ONCE (1 TOTAL), CHEMOTHERAPY COURSE
     Route: 042
     Dates: start: 20200519
  7. AVASTIN [Suspect]
     Active Substance: BEVACIZUMAB
     Indication: CERVIX CARCINOMA
     Dosage: 575 MILLIGRAM, ONCE (1 TOTAL), 25 MG/ML, SOLUTION TO DILUTE FOR INFUSION, CHEMOTHERAPY COURSE
     Route: 042
     Dates: start: 20200519

REACTIONS (4)
  - Hypotension [Recovered/Resolved]
  - Malaise [Recovered/Resolved]
  - Erythema [Recovered/Resolved]
  - Feeling hot [Recovered/Resolved]

NARRATIVE: CASE EVENT DATE: 20200519
